FAERS Safety Report 15818620 (Version 1)
Quarter: 2019Q1

REPORT INFORMATION
  Report Type: Spontaneous
  Country: DE (occurrence: DE)
  Receive Date: 20190113
  Receipt Date: 20190113
  Transmission Date: 20190417
  Serious: Yes (Other)
  Sender: FDA-Public Use
  Company Number: DE-ASTRAZENECA-2019SE03577

PATIENT
  Sex: Female
  Weight: 112 kg

DRUGS (1)
  1. OMEP [Suspect]
     Active Substance: OMEPRAZOLE
     Indication: PRODUCT USED FOR UNKNOWN INDICATION
     Dosage: UNK
     Route: 048

REACTIONS (3)
  - Type I hypersensitivity [Recovering/Resolving]
  - Rash erythematous [Recovering/Resolving]
  - Inflammation [Recovering/Resolving]
